FAERS Safety Report 20027711 (Version 1)
Quarter: 2021Q4

REPORT INFORMATION
  Report Type: Other
  Country: US (occurrence: None)
  Receive Date: 20211103
  Receipt Date: 20211103
  Transmission Date: 20220303
  Serious: Yes (Hospitalization, Other)
  Sender: FDA-Public Use
  Company Number: US-ROCHE-2722693

PATIENT
  Sex: Male

DRUGS (16)
  1. RITUXAN [Suspect]
     Active Substance: RITUXIMAB
     Indication: Mantle cell lymphoma
     Dosage: ONGOING: NO
     Route: 042
     Dates: start: 202002, end: 202005
  2. GAZYVA [Suspect]
     Active Substance: OBINUTUZUMAB
     Indication: Mantle cell lymphoma
     Route: 042
     Dates: start: 202006, end: 202007
  3. GAZYVA [Suspect]
     Active Substance: OBINUTUZUMAB
     Route: 042
     Dates: start: 20210823
  4. GAZYVA [Suspect]
     Active Substance: OBINUTUZUMAB
     Route: 042
     Dates: start: 20211018
  5. PROMETHAZINE HYDROCHLORIDE [Concomitant]
     Active Substance: PROMETHAZINE HYDROCHLORIDE
     Indication: Nausea
     Dosage: TAKE 1 TABLETS PO Q4H PRN
     Route: 048
  6. ACETAMINOPHEN\HYDROCODONE [Concomitant]
     Active Substance: ACETAMINOPHEN\HYDROCODONE
     Indication: Pain
     Dosage: TAKE 1 PO Q4H PRN
     Route: 048
  7. LIDOCAINE\PRILOCAINE [Concomitant]
     Active Substance: LIDOCAINE\PRILOCAINE
     Dosage: APPLY TO MEDIPORT AREA PRIOR TO TREATMENT
     Route: 061
  8. ASPIRIN [Concomitant]
     Active Substance: ASPIRIN
  9. COENZYME Q10 [Concomitant]
     Active Substance: DIETARY SUPPLEMENT\UBIDECARENONE
  10. METHOCARBAMOL [Concomitant]
     Active Substance: METHOCARBAMOL
     Dosage: TAKE 1 PO QID PRN
     Route: 048
  11. MONTELUKAST SODIUM [Concomitant]
     Active Substance: MONTELUKAST SODIUM
     Dosage: TAKE TABLET PO 12HRS PRIOR TO RITUXAN, 1 TABLET 30 MINS PRIOR TO AND 1 TAB 12 HOURS AFTER
     Route: 048
  12. NAPROXEN [Concomitant]
     Active Substance: NAPROXEN
     Route: 048
  13. ONDANSETRON [Concomitant]
     Active Substance: ONDANSETRON
     Dosage: TAKE 1 TABLETS PO Q8H PRN
     Route: 048
  14. LORAZEPAM [Concomitant]
     Active Substance: LORAZEPAM
     Dosage: TAKE1-2 PO PRIOR TO PROCEDURE
     Route: 048
  15. LORAZEPAM [Concomitant]
     Active Substance: LORAZEPAM
     Dosage: TAKE1-2 PO PRIOR TO PROCEDURE
     Route: 048
  16. BENADRYL [Concomitant]
     Active Substance: DIPHENHYDRAMINE HYDROCHLORIDE

REACTIONS (13)
  - Drug hypersensitivity [Unknown]
  - Off label use [Unknown]
  - Mantle cell lymphoma [Unknown]
  - Anaphylactic reaction [Unknown]
  - Clostridium difficile infection [Unknown]
  - Aspergillus infection [Unknown]
  - Intestinal obstruction [Unknown]
  - Hallucination [Unknown]
  - Fatigue [Unknown]
  - Constipation [Unknown]
  - Dry skin [Unknown]
  - Alopecia [Unknown]
  - Memory impairment [Unknown]
